FAERS Safety Report 21578249 (Version 6)
Quarter: 2023Q1

REPORT INFORMATION
  Report Type: Report from Study
  Country: IE (occurrence: IE)
  Receive Date: 20221110
  Receipt Date: 20230307
  Transmission Date: 20230418
  Serious: Yes (Hospitalization, Other)
  Sender: FDA-Public Use
  Company Number: IE-VERTEX PHARMACEUTICALS-2022-015896

PATIENT
  Age: 14 Year
  Sex: Female
  Weight: 50 kg

DRUGS (12)
  1. ELEXACAFTOR\IVACAFTOR\TEZACAFTOR [Suspect]
     Active Substance: ELEXACAFTOR\IVACAFTOR\TEZACAFTOR
     Indication: Cystic fibrosis
     Dosage: 100 MG ELX/ 50 MG TEZ/ 75 MG IVA OD, 150 MG IVA OD
     Route: 048
     Dates: start: 20220906, end: 20221018
  2. PLACEBO [Suspect]
     Active Substance: UNSPECIFIED INGREDIENT
     Indication: Cystic fibrosis
     Dosage: UNK
     Route: 048
     Dates: start: 20220906, end: 20221018
  3. ELEXACAFTOR\IVACAFTOR\TEZACAFTOR [Concomitant]
     Active Substance: ELEXACAFTOR\IVACAFTOR\TEZACAFTOR
     Indication: Cystic fibrosis
     Dosage: UNK
     Route: 048
     Dates: start: 20221118
  4. CREON [Concomitant]
     Active Substance: PANCRELIPASE AMYLASE\PANCRELIPASE LIPASE\PANCRELIPASE PROTEASE
     Indication: Pancreatic failure
     Dosage: UNK
     Route: 065
     Dates: start: 20140924
  5. ALBUTEROL [Concomitant]
     Active Substance: ALBUTEROL
     Indication: Infective pulmonary exacerbation of cystic fibrosis
     Dosage: UNK, PRN
     Route: 065
     Dates: start: 20141119
  6. LEVOCARNITINE [Concomitant]
     Active Substance: LEVOCARNITINE
     Indication: Medium-chain acyl-coenzyme A dehydrogenase deficiency
     Dosage: UNK
     Route: 065
     Dates: start: 200712
  7. SODIUM CHLORIDE [Concomitant]
     Active Substance: SODIUM CHLORIDE
     Indication: Airway secretion clearance therapy
     Dosage: UNK
     Route: 065
     Dates: start: 20140924
  8. ALFLOREX [Concomitant]
     Indication: Routine health maintenance
     Dosage: UNK
     Route: 065
     Dates: start: 2010
  9. SERETIDE [Concomitant]
     Active Substance: FLUTICASONE PROPIONATE\SALMETEROL XINAFOATE
     Indication: Asthma
     Dosage: UNK
     Route: 065
     Dates: start: 20190703
  10. MIDAZOLAM [Concomitant]
     Active Substance: MIDAZOLAM
     Indication: Analgesic therapy
     Dosage: UNK
     Dates: start: 20221020, end: 20221020
  11. NITROUS OXIDE\OXYGEN [Concomitant]
     Active Substance: NITROUS OXIDE\OXYGEN
     Indication: Analgesic therapy
     Dosage: UNK
     Dates: start: 20221024, end: 20221024
  12. PULMOZYME [Concomitant]
     Active Substance: DORNASE ALFA
     Indication: Prophylaxis
     Dosage: UNK
     Dates: start: 20221031

REACTIONS (4)
  - Meningitis aseptic [Recovered/Resolved]
  - Gamma-glutamyltransferase increased [Recovered/Resolved]
  - Aspartate aminotransferase increased [Recovered/Resolved]
  - Alanine aminotransferase increased [Recovered/Resolved]

NARRATIVE: CASE EVENT DATE: 20221020
